FAERS Safety Report 18098598 (Version 1)
Quarter: 2020Q3

REPORT INFORMATION
  Report Type: Other
  Country: GB (occurrence: GB)
  Receive Date: 20200731
  Receipt Date: 20200731
  Transmission Date: 20201103
  Serious: Yes (Hospitalization, Disabling, Other)
  Sender: FDA-Public Use
  Company Number: GB-STRIDES ARCOLAB LIMITED-2020SP008819

PATIENT
  Age: 71 Year
  Sex: Female
  Weight: 89 kg

DRUGS (4)
  1. PERINDOPRIL [PERINDOPRIL ARGININE] [Suspect]
     Active Substance: PERINDOPRIL ARGININE
     Indication: PRODUCT USED FOR UNKNOWN INDICATION
     Dosage: 2 MILLIGRAM, UNKNOWN
     Route: 048
     Dates: end: 20191128
  2. AMLODIPINE [Suspect]
     Active Substance: AMLODIPINE BESYLATE
     Indication: HYPERTENSION
     Dosage: 10 MILLIGRAM, UNKNOWN
     Route: 048
     Dates: end: 20191128
  3. ATENOLOL. [Suspect]
     Active Substance: ATENOLOL
     Indication: PRODUCT USED FOR UNKNOWN INDICATION
     Dosage: 10 MILLIGRAM, UNKNOWN
     Route: 048
     Dates: end: 20191127
  4. RAMIPRIL. [Suspect]
     Active Substance: RAMIPRIL
     Indication: PRODUCT USED FOR UNKNOWN INDICATION
     Dosage: 2.5 MILLIGRAM, UNKNOWN
     Route: 048
     Dates: start: 20191031, end: 20191106

REACTIONS (30)
  - Gait disturbance [Not Recovered/Not Resolved]
  - Mood swings [Recovered/Resolved]
  - Bradykinesia [Unknown]
  - Hyperhidrosis [Recovered/Resolved]
  - Diplopia [Unknown]
  - Dizziness [Not Recovered/Not Resolved]
  - Tremor [Unknown]
  - Presyncope [Not Recovered/Not Resolved]
  - Depression [Not Recovered/Not Resolved]
  - Muscle rigidity [Recovered/Resolved]
  - Asthenia [Unknown]
  - Dysphagia [Recovered/Resolved]
  - Aphasia [Not Recovered/Not Resolved]
  - Nausea [Unknown]
  - Vision blurred [Not Recovered/Not Resolved]
  - Paralysis [Unknown]
  - Dysphemia [Unknown]
  - Muscle tightness [Recovered/Resolved]
  - Blood pressure increased [Not Recovered/Not Resolved]
  - Headache [Recovered/Resolved]
  - Anxiety [Recovered/Resolved]
  - Vertigo [Recovered/Resolved]
  - Loss of consciousness [Not Recovered/Not Resolved]
  - Paraesthesia [Recovered/Resolved]
  - Dry mouth [Recovered/Resolved]
  - Speech disorder [Not Recovered/Not Resolved]
  - Myalgia [Recovered/Resolved]
  - Oral discomfort [Not Recovered/Not Resolved]
  - Fatigue [Recovered/Resolved]
  - Insomnia [Not Recovered/Not Resolved]

NARRATIVE: CASE EVENT DATE: 20191031
